FAERS Safety Report 23555877 (Version 1)
Quarter: 2024Q1

REPORT INFORMATION
  Report Type: Other
  Country: US (occurrence: None)
  Receive Date: 20240222
  Receipt Date: 20240222
  Transmission Date: 20240409
  Serious: Yes (Death, Hospitalization, Other)
  Sender: FDA-Public Use
  Company Number: US-ROCHE-3457514

PATIENT
  Age: 77 Year
  Sex: Male
  Weight: 59.474 kg

DRUGS (26)
  1. XOLAIR [Suspect]
     Active Substance: OMALIZUMAB
     Indication: Idiopathic urticaria
     Dosage: LAST DOSE :/AUG/2023
     Route: 058
  2. ELIQUIS [Concomitant]
     Active Substance: APIXABAN
  3. VITAMIN C [Concomitant]
     Active Substance: ASCORBIC ACID
  4. TEMOVATE [Concomitant]
     Active Substance: CLOBETASOL PROPIONATE
  5. PLAVIX [Concomitant]
     Active Substance: CLOPIDOGREL BISULFATE
  6. BENTYL [Concomitant]
     Active Substance: DICYCLOMINE HYDROCHLORIDE
  7. ZETIA [Concomitant]
     Active Substance: EZETIMIBE
  8. FOLIC ACID [Concomitant]
     Active Substance: FOLIC ACID
  9. GLUCOTROL XL [Concomitant]
     Active Substance: GLIPIZIDE
  10. NORCO [Concomitant]
     Active Substance: ACETAMINOPHEN\HYDROCODONE BITARTRATE
  11. ATARAX [Concomitant]
     Active Substance: HYDROXYZINE HYDROCHLORIDE
  12. LISINOPRIL [Concomitant]
     Active Substance: LISINOPRIL
  13. GLUCOPHAGE [Concomitant]
     Active Substance: METFORMIN HYDROCHLORIDE
  14. REGLAN [Concomitant]
     Active Substance: METOCLOPRAMIDE HYDROCHLORIDE
  15. TOPROL XL [Concomitant]
     Active Substance: METOPROLOL SUCCINATE
  16. MYRBETRIQ [Concomitant]
     Active Substance: MIRABEGRON
  17. NITROSTAT [Concomitant]
     Active Substance: NITROGLYCERIN
  18. ZOFRAN [Concomitant]
     Active Substance: ONDANSETRON HYDROCHLORIDE
  19. PYRIDIUM [Concomitant]
     Active Substance: PHENAZOPYRIDINE
  20. SEROQUEL [Concomitant]
     Active Substance: QUETIAPINE FUMARATE
  21. RANEXA [Concomitant]
     Active Substance: RANOLAZINE
  22. CRESTOR [Concomitant]
     Active Substance: ROSUVASTATIN CALCIUM
  23. SENOKOT [Concomitant]
     Active Substance: SENNOSIDES
  24. CARAFATE [Concomitant]
     Active Substance: SUCRALFATE
  25. FLOMAX [Concomitant]
     Active Substance: TAMSULOSIN HYDROCHLORIDE
  26. AMBIEN [Concomitant]
     Active Substance: ZOLPIDEM TARTRATE

REACTIONS (9)
  - Respiratory failure [Fatal]
  - Renal cancer [Unknown]
  - Lower limb fracture [Not Recovered/Not Resolved]
  - Septic shock [Fatal]
  - Illness [Unknown]
  - Vomiting [Unknown]
  - Fall [Unknown]
  - Off label use [Unknown]
  - Lung disorder [Unknown]

NARRATIVE: CASE EVENT DATE: 20230901
